FAERS Safety Report 4899988-4 (Version None)
Quarter: 2006Q1

REPORT INFORMATION
  Report Type: 
  Country: None (occurrence: None)
  Receive Date: 20060201
  Receipt Date: 20060123
  Transmission Date: 20060701
  Serious: Yes (Hospitalization)
  Sender: FDA-Public Use
  Company Number: US200601002828

PATIENT
  Age: 88 Year
  Sex: Female

DRUGS (1)
  1. SYMBYAX [Suspect]
     Indication: DEPRESSION
     Dosage: D/F
     Dates: start: 20050101, end: 20050101

REACTIONS (1)
  - SYNCOPE [None]
